FAERS Safety Report 5702327-X (Version None)
Quarter: 2008Q2

REPORT INFORMATION
  Report Type: 
  Country: None (occurrence: None)
  Receive Date: 20080411
  Receipt Date: 20080407
  Transmission Date: 20081010
  Serious: Yes (Hospitalization)
  Sender: FDA-Public Use
  Company Number: US-BRISTOL-MYERS SQUIBB COMPANY-14140420

PATIENT
  Age: 54 Year
  Sex: Female
  Weight: 70 kg

DRUGS (1)
  1. DASATINIB [Suspect]
     Indication: CHONDROSARCOMA
     Dosage: FIRST DOSE WAS ON 03-JAN-2008.
     Route: 048
     Dates: start: 20080103, end: 20080402

REACTIONS (2)
  - DEHYDRATION [None]
  - ENTERITIS [None]
